FAERS Safety Report 10525505 (Version 2)
Quarter: 2014Q4

REPORT INFORMATION
  Report Type: Spontaneous
  Country: US (occurrence: US)
  Receive Date: 20141017
  Receipt Date: 20141027
  Transmission Date: 20150528
  Serious: Yes (Hospitalization, Other)
  Sender: FDA-Public Use
  Company Number: US-PFIZER INC-2014282647

PATIENT
  Age: 20 Year
  Sex: Male
  Weight: 73.02 kg

DRUGS (2)
  1. ZOLOFT [Concomitant]
     Active Substance: SERTRALINE HYDROCHLORIDE
     Indication: DEPRESSION
     Dosage: UNK
  2. LYRICA [Suspect]
     Active Substance: PREGABALIN
     Indication: COMPLEX REGIONAL PAIN SYNDROME
     Dosage: 300 MG, 2X/DAY
     Dates: start: 20140205, end: 20141010

REACTIONS (4)
  - Product use issue [Unknown]
  - Coma scale abnormal [Unknown]
  - Overdose [Not Recovered/Not Resolved]
  - Circulatory collapse [Unknown]

NARRATIVE: CASE EVENT DATE: 20140205
